FAERS Safety Report 4285613-2 (Version None)
Quarter: 2004Q1

REPORT INFORMATION
  Report Type: 
  Country: None (occurrence: None)
  Receive Date: 20040203
  Receipt Date: 20040128
  Transmission Date: 20041129
  Serious: Yes (Life-Threatening, Hospitalization, Disabling, Other)
  Sender: FDA-Public Use
  Company Number: 200411935BWH

PATIENT
  Age: 20 Year
  Sex: Female

DRUGS (1)
  1. AVELOX [Suspect]
     Dosage: ONCE, ORAL
     Route: 048
     Dates: start: 20031120

REACTIONS (5)
  - ANAPHYLACTIC REACTION [None]
  - APALLIC SYNDROME [None]
  - BRAIN OEDEMA [None]
  - CARDIO-RESPIRATORY ARREST [None]
  - POSTURING [None]
